FAERS Safety Report 18237212 (Version 2)
Quarter: 2020Q4

REPORT INFORMATION
  Report Type: Spontaneous
  Country: US (occurrence: US)
  Receive Date: 20200907
  Receipt Date: 20201119
  Transmission Date: 20210113
  Serious: No
  Sender: FDA-Public Use
  Company Number: US-AMGEN-USASP2020141936

PATIENT
  Age: 82 Year
  Sex: Female

DRUGS (1)
  1. REPATHA [Suspect]
     Active Substance: EVOLOCUMAB
     Indication: BLOOD CHOLESTEROL ABNORMAL
     Dosage: 140 MILLIGRAM, Q2WK
     Route: 065
     Dates: start: 2020

REACTIONS (1)
  - Peripheral swelling [Unknown]

NARRATIVE: CASE EVENT DATE: 202008
